FAERS Safety Report 7101177-X (Version None)
Quarter: 2010Q4

REPORT INFORMATION
  Report Type: 
  Country: None (occurrence: None)
  Receive Date: 20101105
  Receipt Date: 20101027
  Transmission Date: 20110411
  Serious: Yes (Other)
  Sender: FDA-Public Use
  Company Number: 2010US004470

PATIENT
  Age: 68 Year
  Sex: Male

DRUGS (7)
  1. VESICARE [Suspect]
     Indication: HYPERTONIC BLADDER
     Dosage: 5 MG, ORAL; ORAL; ORAL
     Route: 048
     Dates: start: 20100224, end: 20100401
  2. VESICARE [Suspect]
     Indication: URINARY INCONTINENCE
     Dosage: 5 MG, ORAL; ORAL; ORAL
     Route: 048
     Dates: start: 20100224, end: 20100401
  3. VESICARE [Suspect]
     Indication: HYPERTONIC BLADDER
     Dosage: 5 MG, ORAL; ORAL; ORAL
     Route: 048
     Dates: start: 20101028, end: 20101028
  4. VESICARE [Suspect]
     Indication: URINARY INCONTINENCE
     Dosage: 5 MG, ORAL; ORAL; ORAL
     Route: 048
     Dates: start: 20101028, end: 20101028
  5. VESICARE [Suspect]
     Indication: HYPERTONIC BLADDER
     Dosage: 5 MG, ORAL; ORAL; ORAL
     Route: 048
     Dates: start: 20101030, end: 20101030
  6. VESICARE [Suspect]
     Indication: URINARY INCONTINENCE
     Dosage: 5 MG, ORAL; ORAL; ORAL
     Route: 048
     Dates: start: 20101030, end: 20101030
  7. ANTIHYPERTENSIVES [Concomitant]

REACTIONS (2)
  - BLINDNESS TRANSIENT [None]
  - CONSTIPATION [None]
